FAERS Safety Report 19858111 (Version 3)
Quarter: 2021Q4

REPORT INFORMATION
  Report Type: Spontaneous
  Country: US (occurrence: US)
  Receive Date: 20210921
  Receipt Date: 20211005
  Transmission Date: 20220303
  Serious: No
  Sender: FDA-Public Use
  Company Number: US-TEVA-2021-US-1954618

PATIENT
  Age: 43 Year
  Sex: Female
  Weight: 82.55 kg

DRUGS (2)
  1. COPAXONE [Suspect]
     Active Substance: GLATIRAMER ACETATE
     Indication: Multiple sclerosis
     Route: 065
     Dates: start: 201603, end: 202104
  2. DEVICE [Suspect]
     Active Substance: DEVICE
     Route: 065

REACTIONS (17)
  - Immediate post-injection reaction [Unknown]
  - Erythema [Unknown]
  - Palpitations [Unknown]
  - Speech disorder [Unknown]
  - Dyspnoea [Unknown]
  - Injection site mass [Unknown]
  - Injection site rash [Unknown]
  - Injection site urticaria [Unknown]
  - Fatigue [Unknown]
  - Chest pain [Unknown]
  - Product quality issue [Unknown]
  - Burning sensation [Unknown]
  - Feeling hot [Unknown]
  - Flushing [Unknown]
  - Cough [Unknown]
  - Dry throat [Unknown]
  - Chest discomfort [Unknown]

NARRATIVE: CASE EVENT DATE: 20210401
